FAERS Safety Report 5331727-5 (Version None)
Quarter: 2007Q2

REPORT INFORMATION
  Report Type: 
  Country: None (occurrence: None)
  Receive Date: 20070517
  Receipt Date: 20070125
  Transmission Date: 20071010
  Serious: Yes (Disabling)
  Sender: FDA-Public Use
  Company Number: TKT01200700031

PATIENT
  Age: 7 Year
  Sex: Male
  Weight: 30 kg

DRUGS (4)
  1. IDURSULFASE (IDURSULFASE) (0.5 MILLIGRAM(S) / KILOGRAM, CONCENTRATE FO [Suspect]
     Indication: MUCOPOLYSACCHARIDOSIS II
     Dosage: (15 MG, 1 IN 1 WK) INTRAVENOUS DRIP
     Route: 041
     Dates: start: 20060920
  2. CLONIDINE [Concomitant]
  3. RISPERDAL [Concomitant]
  4. ALBUTEROL [Concomitant]

REACTIONS (2)
  - FALL [None]
  - PAIN [None]
